FAERS Safety Report 25111387 (Version 1)
Quarter: 2025Q1

REPORT INFORMATION
  Report Type: Spontaneous
  Country: JP (occurrence: JP)
  Receive Date: 20250324
  Receipt Date: 20250324
  Transmission Date: 20250408
  Serious: Yes (Other)
  Sender: IPCA
  Company Number: JP-IPCA LABORATORIES LIMITED-IPC-2025-JP-000661

PATIENT

DRUGS (1)
  1. PROPRANOLOL [Suspect]
     Active Substance: PROPRANOLOL HYDROCHLORIDE
     Indication: Infantile haemangioma
     Route: 048

REACTIONS (1)
  - Asthma [Recovered/Resolved]
